FAERS Safety Report 5861490-0 (Version None)
Quarter: 2008Q3

REPORT INFORMATION
  Report Type: 
  Country: None (occurrence: None)
  Receive Date: 20080827
  Receipt Date: 20080602
  Transmission Date: 20090109
  Serious: No
  Sender: FDA-Public Use
  Company Number: US-ABBOTT-08P-163-0454376-00

PATIENT
  Sex: Male

DRUGS (9)
  1. COATED PDS [Suspect]
     Indication: BLOOD CHOLESTEROL INCREASED
     Route: 048
     Dates: start: 20080415, end: 20080513
  2. COATED PDS [Suspect]
     Route: 048
     Dates: start: 20080513, end: 20080514
  3. COATED PDS [Suspect]
     Route: 048
     Dates: end: 20080526
  4. COATED PDS [Suspect]
     Route: 048
     Dates: start: 20080526, end: 20080602
  5. COATED PDS [Suspect]
     Route: 048
     Dates: start: 20080602
  6. COLESTYRAMINE [Concomitant]
     Indication: BLOOD CHOLESTEROL INCREASED
     Route: 048
  7. CLOPIDOGREL [Concomitant]
     Indication: STENT PLACEMENT
     Route: 048
  8. ACETYLSALICYLIC ACID SRT [Concomitant]
     Indication: STENT PLACEMENT
     Route: 048
  9. CETIRIZINE HYDROCHLORIDE [Concomitant]
     Indication: SEASONAL ALLERGY
     Route: 048

REACTIONS (3)
  - FLUSHING [None]
  - GENERALISED ERYTHEMA [None]
  - PRURITUS GENERALISED [None]
